FAERS Safety Report 18291093 (Version 2)
Quarter: 2021Q2

REPORT INFORMATION
  Report Type: Other
  Country: US (occurrence: US)
  Receive Date: 20200922
  Receipt Date: 20210407
  Transmission Date: 20210717
  Serious: Yes (Hospitalization)
  Sender: FDA-Public Use
  Company Number: US-ROCHE-2681479

PATIENT
  Sex: Female

DRUGS (3)
  1. OCREVUS [Suspect]
     Active Substance: OCRELIZUMAB
     Dosage: INFUSE 300 MG DAY 1 AND DAY 15 THEN 600 MG Q 6 MO
     Route: 042
  2. OCREVUS [Suspect]
     Active Substance: OCRELIZUMAB
     Indication: RELAPSING-REMITTING MULTIPLE SCLEROSIS
     Dosage: ONGOING: YES
     Route: 065
     Dates: start: 20200806
  3. OCREVUS [Suspect]
     Active Substance: OCRELIZUMAB
     Dosage: INFUSE 300 MG DAY 1 AND DAY 15 THEN 600 MG Q 6 MO
     Route: 042

REACTIONS (2)
  - Infection [Unknown]
  - Urinary tract infection [Unknown]
